FAERS Safety Report 7509836-1 (Version None)
Quarter: 2011Q2

REPORT INFORMATION
  Report Type: 
  Country: None (occurrence: None)
  Receive Date: 20110527
  Receipt Date: 20110519
  Transmission Date: 20111010
  Serious: Yes (Hospitalization)
  Sender: FDA-Public Use
  Company Number: A0929325A

PATIENT
  Age: 58 Year
  Sex: Female

DRUGS (1)
  1. COREG [Suspect]
     Dosage: 12.5MG VARIABLE DOSE
     Route: 048
     Dates: start: 20081229

REACTIONS (1)
  - ADVERSE EVENT [None]
